FAERS Safety Report 24930564 (Version 1)
Quarter: 2025Q1

REPORT INFORMATION
  Report Type: Spontaneous
  Country: US (occurrence: US)
  Receive Date: 20250205
  Receipt Date: 20250205
  Transmission Date: 20250409
  Serious: No
  Sender: LUNDBECK
  Company Number: US-LUNDBECK-DKLU4009817

PATIENT

DRUGS (10)
  1. VYEPTI [Suspect]
     Active Substance: EPTINEZUMAB-JJMR
     Indication: Migraine
     Dosage: 100 MILLIGRAM
     Route: 041
     Dates: start: 20240816, end: 20241121
  2. VYEPTI [Suspect]
     Active Substance: EPTINEZUMAB-JJMR
     Dosage: 300 MILLIGRAM
     Route: 041
     Dates: start: 20241122, end: 20250121
  3. SUMATRIPTAN [Concomitant]
     Active Substance: SUMATRIPTAN
     Indication: Headache
     Route: 048
  4. ARIPIPRAZOLE [Concomitant]
     Active Substance: ARIPIPRAZOLE
     Indication: Product used for unknown indication
     Route: 048
  5. ESCITALOPRAM OXALATE [Concomitant]
     Active Substance: ESCITALOPRAM OXALATE
     Indication: Product used for unknown indication
     Route: 048
  6. FISH OIL [FISH OIL;TOCOPHERYL ACETATE] [Concomitant]
     Indication: Product used for unknown indication
     Route: 048
  7. IBUPROFEN [Concomitant]
     Active Substance: IBUPROFEN
     Indication: Product used for unknown indication
     Route: 048
  8. LISINOPRIL [Concomitant]
     Active Substance: LISINOPRIL
     Indication: Product used for unknown indication
     Route: 048
  9. NARCAN [Concomitant]
     Active Substance: NALOXONE HYDROCHLORIDE
     Indication: Product used for unknown indication
     Route: 045
  10. SIMVASTATIN [Concomitant]
     Active Substance: SIMVASTATIN
     Indication: Product used for unknown indication
     Route: 048

REACTIONS (1)
  - Drug ineffective [Not Recovered/Not Resolved]
